FAERS Safety Report 9936828 (Version 1)
Quarter: 2014Q1

REPORT INFORMATION
  Report Type: Spontaneous
  Country: US (occurrence: None)
  Receive Date: 20140110
  Receipt Date: 20140110
  Transmission Date: 20141002
  Serious: Yes (Other)
  Sender: FDA-Public Use
  Company Number: US-010353

PATIENT
  Age: 34 Year
  Sex: Female
  Weight: 58.97 kg

DRUGS (2)
  1. LYSTEDA [Suspect]
     Indication: MENORRHAGIA
     Dosage: 130 MG TID, TWO TABLETS, THREE TIMES DAILY
     Dates: start: 20121212, end: 20121212
  2. PENTASA [Concomitant]

REACTIONS (1)
  - Hypersensitivity [None]
